FAERS Safety Report 22774012 (Version 16)
Quarter: 2024Q4

REPORT INFORMATION
  Report Type: Spontaneous
  Country: GB (occurrence: GB)
  Receive Date: 20230801
  Receipt Date: 20241108
  Transmission Date: 20250114
  Serious: Yes (Hospitalization, Other)
  Sender: TEVA
  Company Number: GB-002147023-NVSC2023GB152984

PATIENT
  Age: 48 Year
  Sex: Female
  Weight: 50 kg

DRUGS (52)
  1. LEUCOVORIN [Suspect]
     Active Substance: LEUCOVORIN\LEUCOVORIN CALCIUM
     Indication: Colorectal cancer metastatic
     Dosage: 590 MILLIGRAM
     Route: 042
     Dates: start: 20230405
  2. LEUCOVORIN [Suspect]
     Active Substance: LEUCOVORIN\LEUCOVORIN CALCIUM
     Indication: Colorectal cancer metastatic
     Dosage: 590 MILLIGRAM
     Route: 042
     Dates: start: 20230405
  3. LEUCOVORIN [Suspect]
     Active Substance: LEUCOVORIN\LEUCOVORIN CALCIUM
     Indication: Colorectal cancer metastatic
     Dosage: 690 MILLIGRAM
     Route: 042
     Dates: start: 20230405
  4. LEUCOVORIN [Suspect]
     Active Substance: LEUCOVORIN\LEUCOVORIN CALCIUM
     Indication: Colorectal cancer metastatic
     Route: 042
     Dates: start: 20230405
  5. LEUCOVORIN [Suspect]
     Active Substance: LEUCOVORIN\LEUCOVORIN CALCIUM
     Indication: Colorectal cancer metastatic
     Dosage: 690 MILLIGRAM
     Route: 042
     Dates: start: 20230405
  6. LEUCOVORIN [Suspect]
     Active Substance: LEUCOVORIN\LEUCOVORIN CALCIUM
     Indication: Colorectal cancer metastatic
     Route: 042
     Dates: start: 20230405
  7. LEUCOVORIN [Suspect]
     Active Substance: LEUCOVORIN\LEUCOVORIN CALCIUM
     Indication: Colorectal cancer metastatic
     Route: 042
     Dates: start: 20230405
  8. LEUCOVORIN [Suspect]
     Active Substance: LEUCOVORIN\LEUCOVORIN CALCIUM
     Indication: Colorectal cancer metastatic
     Dosage: 690 MILLIGRAM
     Route: 042
     Dates: start: 20230405
  9. LEUCOVORIN [Suspect]
     Active Substance: LEUCOVORIN\LEUCOVORIN CALCIUM
     Indication: Colorectal cancer metastatic
     Route: 042
     Dates: start: 20230405
  10. LEUCOVORIN [Suspect]
     Active Substance: LEUCOVORIN\LEUCOVORIN CALCIUM
     Indication: Colorectal cancer metastatic
     Dosage: 690 MILLIGRAM
     Route: 042
     Dates: start: 20230405
  11. LEUCOVORIN [Suspect]
     Active Substance: LEUCOVORIN\LEUCOVORIN CALCIUM
     Indication: Colorectal cancer metastatic
     Route: 042
     Dates: start: 20230405
  12. LEUCOVORIN [Suspect]
     Active Substance: LEUCOVORIN\LEUCOVORIN CALCIUM
     Indication: Colorectal cancer metastatic
     Dosage: 590 MILLIGRAM
     Route: 042
     Dates: start: 20230405
  13. LEUCOVORIN [Suspect]
     Active Substance: LEUCOVORIN\LEUCOVORIN CALCIUM
     Indication: Colorectal cancer metastatic
     Route: 042
     Dates: start: 20230405
  14. LEUCOVORIN [Suspect]
     Active Substance: LEUCOVORIN\LEUCOVORIN CALCIUM
     Indication: Colorectal cancer metastatic
     Route: 042
     Dates: start: 20230405
  15. OXALIPLATIN [Suspect]
     Active Substance: OXALIPLATIN
     Indication: Colorectal cancer metastatic
     Dosage: 120 MILLIGRAM
     Route: 042
     Dates: start: 20230405
  16. OXALIPLATIN [Suspect]
     Active Substance: OXALIPLATIN
     Indication: Colorectal cancer metastatic
     Dosage: 120 MILLIGRAM
     Route: 042
  17. OXALIPLATIN [Suspect]
     Active Substance: OXALIPLATIN
     Indication: Colorectal cancer metastatic
     Dosage: 120 MILLIGRAM
     Route: 042
     Dates: start: 20230405
  18. OXALIPLATIN [Suspect]
     Active Substance: OXALIPLATIN
     Indication: Colorectal cancer metastatic
     Dosage: 120 MILLIGRAM
     Route: 042
  19. OXALIPLATIN [Suspect]
     Active Substance: OXALIPLATIN
     Indication: Colorectal cancer metastatic
     Dosage: UNK
     Route: 042
  20. OXALIPLATIN [Suspect]
     Active Substance: OXALIPLATIN
     Indication: Colorectal cancer metastatic
     Dosage: 120 MILLIGRAM
     Route: 042
  21. OXALIPLATIN [Suspect]
     Active Substance: OXALIPLATIN
     Indication: Colorectal cancer metastatic
     Dosage: UNK
     Route: 042
  22. FLUOROURACIL [Suspect]
     Active Substance: FLUOROURACIL
     Indication: Colorectal cancer metastatic
     Dosage: 600 MG
     Route: 042
     Dates: start: 20230405
  23. FLUOROURACIL [Suspect]
     Active Substance: FLUOROURACIL
     Indication: Colorectal cancer metastatic
     Dosage: 600 MG
     Route: 042
     Dates: start: 20230405
  24. FLUOROURACIL [Suspect]
     Active Substance: FLUOROURACIL
     Indication: Colorectal cancer metastatic
     Dosage: 600 MG
     Route: 042
     Dates: start: 20230405
  25. FLUOROURACIL [Suspect]
     Active Substance: FLUOROURACIL
     Indication: Colorectal cancer metastatic
     Dosage: 600 MG
     Route: 042
     Dates: start: 20230405
  26. FLUOROURACIL [Suspect]
     Active Substance: FLUOROURACIL
     Indication: Colorectal cancer metastatic
     Dosage: UNK
     Route: 065
  27. ZOPICLONE [Concomitant]
     Active Substance: ZOPICLONE
     Indication: Insomnia
     Dosage: UNK
     Route: 048
     Dates: start: 20230523
  28. ZOPICLONE [Concomitant]
     Active Substance: ZOPICLONE
     Indication: Insomnia
     Dosage: UNK
     Route: 065
     Dates: start: 20230523
  29. BEVACIZUMAB [Suspect]
     Active Substance: BEVACIZUMAB
     Indication: Colorectal cancer metastatic
     Dosage: 250 MILLIGRAM
     Route: 042
     Dates: start: 20230405
  30. BEVACIZUMAB [Suspect]
     Active Substance: BEVACIZUMAB
     Indication: Colorectal cancer metastatic
     Dosage: 250 MILLIGRAM
     Route: 042
     Dates: start: 20230405
  31. BENZYDAMINE [Concomitant]
     Active Substance: BENZYDAMINE
     Indication: Stomatitis
     Dosage: 0.15 %
     Route: 048
  32. BENZYDAMINE [Concomitant]
     Active Substance: BENZYDAMINE
     Indication: Stomatitis
     Dosage: 0.15 %
     Route: 048
  33. BENZYDAMINE [Concomitant]
     Active Substance: BENZYDAMINE
     Indication: Stomatitis
     Dosage: 0.15 PERCENT
     Route: 048
     Dates: start: 20230605
  34. BENZYDAMINE [Concomitant]
     Active Substance: BENZYDAMINE
     Indication: Stomatitis
     Dosage: 0.15 %
     Route: 048
  35. BENZYDAMINE [Concomitant]
     Active Substance: BENZYDAMINE
     Indication: Stomatitis
     Dosage: 0.15 %
     Route: 048
  36. BENZYDAMINE [Concomitant]
     Active Substance: BENZYDAMINE
     Indication: Stomatitis
     Dosage: 0.15 %
     Route: 048
  37. MORPHINE SULFATE [Concomitant]
     Active Substance: MORPHINE SULFATE
     Indication: Abdominal pain lower
     Dosage: UNK
     Dates: start: 20230502
  38. MORPHINE SULFATE [Concomitant]
     Active Substance: MORPHINE SULFATE
     Indication: Abdominal pain lower
     Dosage: UNK
     Dates: start: 20230502
  39. MORPHINE SULFATE [Concomitant]
     Active Substance: MORPHINE SULFATE
     Indication: Abdominal pain lower
     Dosage: UNK
     Dates: start: 20230502
  40. MORPHINE SULFATE [Concomitant]
     Active Substance: MORPHINE SULFATE
     Indication: Abdominal pain lower
     Dosage: UNK
     Dates: start: 20230502
  41. MORPHINE SULFATE [Concomitant]
     Active Substance: MORPHINE SULFATE
     Indication: Abdominal pain lower
     Dosage: UNK
     Dates: start: 20230502
  42. MORPHINE SULFATE [Concomitant]
     Active Substance: MORPHINE SULFATE
     Indication: Abdominal pain lower
     Dosage: UNK
     Dates: start: 20230502
  43. MORPHINE SULFATE [Concomitant]
     Active Substance: MORPHINE SULFATE
     Indication: Abdominal pain lower
     Dosage: UNK
     Dates: start: 20230502
  44. MORPHINE SULFATE [Concomitant]
     Active Substance: MORPHINE SULFATE
     Indication: Abdominal pain lower
     Dosage: UNK
     Dates: start: 20230502
  45. XARELTO [Concomitant]
     Active Substance: RIVAROXABAN
     Indication: Deep vein thrombosis
     Dosage: UNK
     Route: 065
     Dates: start: 20240608
  46. XARELTO [Concomitant]
     Active Substance: RIVAROXABAN
     Indication: Deep vein thrombosis
     Dosage: UNK
     Route: 065
     Dates: start: 20240608
  47. XARELTO [Concomitant]
     Active Substance: RIVAROXABAN
     Indication: Deep vein thrombosis
     Dosage: UNK
     Route: 065
  48. XARELTO [Concomitant]
     Active Substance: RIVAROXABAN
     Indication: Deep vein thrombosis
     Dosage: UNK
     Route: 065
     Dates: start: 20230608
  49. XARELTO [Concomitant]
     Active Substance: RIVAROXABAN
     Indication: Deep vein thrombosis
     Dosage: UNK
     Route: 065
     Dates: start: 20240608
  50. ZOPICLONE [Suspect]
     Active Substance: ZOPICLONE
     Indication: Insomnia
     Route: 048
     Dates: start: 20230523
  51. ZOPICLONE [Suspect]
     Active Substance: ZOPICLONE
     Indication: Insomnia
     Route: 065
     Dates: start: 20230523
  52. BENZYDAMINE HYDROCHLORIDE [Concomitant]
     Active Substance: BENZYDAMINE HYDROCHLORIDE
     Indication: Stomatitis

REACTIONS (4)
  - Colorectal cancer metastatic [Unknown]
  - Ascites [Recovering/Resolving]
  - Condition aggravated [Unknown]
  - Malignant neoplasm progression [Unknown]

NARRATIVE: CASE EVENT DATE: 20230630
